FAERS Safety Report 25495104 (Version 1)
Quarter: 2025Q2

REPORT INFORMATION
  Report Type: Spontaneous
  Country: GB (occurrence: GB)
  Receive Date: 20250630
  Receipt Date: 20250630
  Transmission Date: 20250717
  Serious: Yes (Other)
  Sender: ANI
  Company Number: GB-ANIPHARMA-2025-UK-000108

PATIENT
  Age: 38 Year
  Sex: Female

DRUGS (1)
  1. CANDESARTAN CILEXETIL [Suspect]
     Active Substance: CANDESARTAN CILEXETIL
     Indication: Adverse drug reaction
     Dates: start: 20250526

REACTIONS (1)
  - Burning mouth syndrome [Unknown]

NARRATIVE: CASE EVENT DATE: 20250618
